FAERS Safety Report 5115216-9 (Version None)
Quarter: 2006Q3

REPORT INFORMATION
  Report Type: 
  Country: None (occurrence: None)
  Receive Date: 20060926
  Receipt Date: 20060423
  Transmission Date: 20061208
  Serious: Yes (Hospitalization)
  Sender: FDA-Public Use
  Company Number: US-AVENTIS-200614125US

PATIENT
  Sex: Female

DRUGS (9)
  1. LANTUS [Suspect]
     Indication: DIABETES MELLITUS NON-INSULIN-DEPENDENT
     Dates: start: 20060423, end: 20060101
  2. OPTICLIK (INSULIN INJECTION PEN) [Suspect]
  3. NOVOLOG [Concomitant]
  4. LISINOPRIL [Concomitant]
  5. ATENOLOL [Concomitant]
  6. SINGULAIR [Concomitant]
  7. XOPENEX [Concomitant]
  8. SPIRIVA [Concomitant]
  9. UNKNOWN DRUG [Concomitant]

REACTIONS (7)
  - ANGINA PECTORIS [None]
  - BLOOD GLUCOSE INCREASED [None]
  - CHRONIC OBSTRUCTIVE PULMONARY DISEASE [None]
  - DEVICE MALFUNCTION [None]
  - INJECTION SITE HAEMORRHAGE [None]
  - TREATMENT NONCOMPLIANCE [None]
  - WEIGHT INCREASED [None]
